FAERS Safety Report 9556264 (Version 1)
Quarter: 2013Q3

REPORT INFORMATION
  Report Type: Spontaneous
  Country: US (occurrence: None)
  Receive Date: 20130815
  Receipt Date: 20130815
  Transmission Date: 20140515
  Serious: Yes (Other)
  Sender: FDA-Public Use
  Company Number: ADR-2013-01006

PATIENT
  Age: 51 Year
  Sex: Female

DRUGS (2)
  1. LIORESAL [Suspect]
     Indication: MUSCLE SPASTICITY
  2. DILAUDID [Suspect]

REACTIONS (3)
  - Muscle spasticity [None]
  - Pain [None]
  - Therapeutic response decreased [None]
